FAERS Safety Report 9797590 (Version 1)
Quarter: 2013Q4

REPORT INFORMATION
  Report Type: Spontaneous
  Country: FR (occurrence: None)
  Receive Date: 20131231
  Receipt Date: 20131231
  Transmission Date: 20140711
  Serious: Yes (Hospitalization)
  Sender: FDA-Public Use
  Company Number: B0955275A

PATIENT
  Age: 58 Year
  Sex: Female

DRUGS (3)
  1. PAROXETINE HYDROCHLORIDE (FORMULATION UNKNOWN) (GENERIC) (PAROXETINE HYDROCHLORIDE) [Suspect]
     Indication: PRODUCT USED FOR UNKNOWN INDICATION
  2. ZOLPIDEM (FORMULATION UNKNOWN) (ZOLPIDEM) [Suspect]
     Indication: PRODUCT USED FOR UNKNOWN INDICATION
  3. TRIMEPRAZINE (FORMULATION UNKNOWN) (TRIMEPRAZINE) [Suspect]
     Indication: PRODUCT USED FOR UNKNOWN INDICATION

REACTIONS (1)
  - Acute generalised exanthematous pustulosis [None]
